FAERS Safety Report 10210794 (Version 7)
Quarter: 2015Q2

REPORT INFORMATION
  Report Type: Spontaneous
  Country: US (occurrence: US)
  Receive Date: 20140602
  Receipt Date: 20150624
  Transmission Date: 20150821
  Serious: Yes (Hospitalization, Disabling, Other)
  Sender: FDA-Public Use
  Company Number: US-009507513-1405USA014834

PATIENT
  Sex: Male
  Weight: 80.73 kg

DRUGS (2)
  1. PROPECIA [Suspect]
     Active Substance: FINASTERIDE
     Indication: ANDROGENETIC ALOPECIA
     Dosage: 1 MG, UNK
     Route: 048
     Dates: start: 199906, end: 2003
  2. PROPECIA [Suspect]
     Active Substance: FINASTERIDE
     Dosage: 1 MG, UNK
     Route: 048
     Dates: start: 200908, end: 201106

REACTIONS (50)
  - Sperm concentration decreased [Unknown]
  - Erectile dysfunction [Not Recovered/Not Resolved]
  - Rapid eye movements sleep abnormal [Not Recovered/Not Resolved]
  - Road traffic accident [Unknown]
  - Knee operation [Unknown]
  - Disturbance in attention [Unknown]
  - Chronic obstructive pulmonary disease [Unknown]
  - Male genital atrophy [Not Recovered/Not Resolved]
  - Disturbance in attention [Not Recovered/Not Resolved]
  - Amnesia [Not Recovered/Not Resolved]
  - Headache [Not Recovered/Not Resolved]
  - Nasal congestion [Unknown]
  - Skin abrasion [Unknown]
  - Increased viscosity of nasal secretion [Unknown]
  - Rhinitis [Unknown]
  - Vitamin D deficiency [Unknown]
  - Sleep disorder [Not Recovered/Not Resolved]
  - Semen analysis abnormal [Not Recovered/Not Resolved]
  - Semen volume decreased [Not Recovered/Not Resolved]
  - Ejaculation delayed [Not Recovered/Not Resolved]
  - Insomnia [Not Recovered/Not Resolved]
  - Tinnitus [Unknown]
  - Sexual dysfunction [Unknown]
  - Anxiety [Not Recovered/Not Resolved]
  - Libido decreased [Not Recovered/Not Resolved]
  - Arthralgia [Unknown]
  - Sleep disorder [Unknown]
  - Mass [Unknown]
  - Fatigue [Unknown]
  - Epididymal cyst [Unknown]
  - Nasal septum deviation [Unknown]
  - Gastrooesophageal reflux disease [Not Recovered/Not Resolved]
  - Blood testosterone decreased [Unknown]
  - Hydrocele [Unknown]
  - Suicidal ideation [Not Recovered/Not Resolved]
  - Male orgasmic disorder [Not Recovered/Not Resolved]
  - Infertility [Not Recovered/Not Resolved]
  - Upper-airway cough syndrome [Unknown]
  - Hyperlipidaemia [Unknown]
  - Feeling abnormal [Unknown]
  - Spermatocele [Unknown]
  - Pruritus [Unknown]
  - Varicocele repair [Unknown]
  - Varicocele [Unknown]
  - Mood altered [Unknown]
  - Cognitive disorder [Not Recovered/Not Resolved]
  - Peyronie^s disease [Not Recovered/Not Resolved]
  - Depression [Not Recovered/Not Resolved]
  - Varicocele [Unknown]
  - Drug ineffective [Unknown]

NARRATIVE: CASE EVENT DATE: 2003
